FAERS Safety Report 6821425-0 (Version None)
Quarter: 2010Q2

REPORT INFORMATION
  Report Type: 
  Country: None (occurrence: None)
  Receive Date: 20100630
  Receipt Date: 20100616
  Transmission Date: 20101027
  Serious: Yes (Hospitalization)
  Sender: FDA-Public Use
  Company Number: 002974

PATIENT
  Sex: Male

DRUGS (6)
  1. LACOSAMIDE [Suspect]
     Indication: CONVULSION
     Dosage: 50 MG BID INTRAVENOUS (NOT OTHERWISE SPECIFIED)
     Route: 042
  2. KEPPRA [Suspect]
     Indication: CONVULSION
     Dosage: 1000 MG BID ORAL
     Route: 048
  3. CEREBYX [Concomitant]
  4. VANCOMYCIN [Concomitant]
  5. DILANTON /00017401/ [Concomitant]
  6. PRIMIDONE [Concomitant]

REACTIONS (3)
  - ALANINE AMINOTRANSFERASE INCREASED [None]
  - ASPARTATE AMINOTRANSFERASE INCREASED [None]
  - STATUS EPILEPTICUS [None]
